FAERS Safety Report 15367302 (Version 1)
Quarter: 2018Q3

REPORT INFORMATION
  Report Type: Spontaneous
  Country: US (occurrence: US)
  Receive Date: 20180903
  Receipt Date: 20180903
  Transmission Date: 20181010
  Serious: Yes (Disabling)
  Sender: FDA-Public Use
  Company Number: None

PATIENT
  Age: 57 Year
  Sex: Female
  Weight: 63 kg

DRUGS (11)
  1. LYRICA [Concomitant]
     Active Substance: PREGABALIN
  2. AIMOVIG [Suspect]
     Active Substance: ERENUMAB-AOOE
     Indication: MIGRAINE PROPHYLAXIS
     Dosage: ?          QUANTITY:1 INJECTION(S);OTHER FREQUENCY:ONCE MONTHLY;OTHER ROUTE:SUBCUTANEOUS INJECT?
  3. MAGNESIUM [Concomitant]
     Active Substance: MAGNESIUM
  4. L?LYSINE [Suspect]
     Active Substance: LYSINE
  5. PROBIOTIC [Concomitant]
     Active Substance: PROBIOTICS NOS
  6. WELLBUTRIN [Concomitant]
     Active Substance: BUPROPION HYDROCHLORIDE
  7. TIZANIDINE. [Concomitant]
     Active Substance: TIZANIDINE
  8. IMITREX 50 [Concomitant]
  9. VITAMIN B COMPLEX [Suspect]
     Active Substance: CYANOCOBALAMIN\DEXPANTHENOL\NIACINAMIDE\PYRIDOXINE HYDROCHLORIDE\RIBOFLAVIN 5^-PHOSPHATE SODIUM\THIAMINE HYDROCHLORIDE\VITAMIN B COMPLEX
  10. NATURE?THROID [Suspect]
     Active Substance: THYROID, PORCINE
  11. TRAZEDONE [Concomitant]

REACTIONS (5)
  - Dizziness [None]
  - Herpes zoster [None]
  - Arthralgia [None]
  - Migraine with aura [None]
  - Anxiety [None]

NARRATIVE: CASE EVENT DATE: 20180805
